FAERS Safety Report 16859454 (Version 1)
Quarter: 2019Q4

REPORT INFORMATION
  Report Type: Spontaneous
  Country: US (occurrence: US)
  Receive Date: 20190926
  Receipt Date: 20190926
  Transmission Date: 20200122
  Serious: Yes (Hospitalization, Disabling)
  Sender: FDA-Public Use
  Company Number: None

PATIENT
  Age: 60 Year
  Sex: Female
  Weight: 74.25 kg

DRUGS (2)
  1. CIPROFLOXACIN. [Suspect]
     Active Substance: CIPROFLOXACIN
     Indication: GASTROINTESTINAL INFECTION
     Dosage: ?          QUANTITY:20 TABLET(S);?
     Route: 048
  2. CIPROFLOXACIN. [Suspect]
     Active Substance: CIPROFLOXACIN
     Indication: IRRITABLE BOWEL SYNDROME
     Dosage: ?          QUANTITY:20 TABLET(S);?
     Route: 048

REACTIONS (12)
  - Arthralgia [None]
  - Fatigue [None]
  - Feeling abnormal [None]
  - Hypoaesthesia [None]
  - Vomiting [None]
  - Burning sensation [None]
  - Diarrhoea [None]
  - Paraesthesia [None]
  - Muscle spasms [None]
  - Depression [None]
  - Myalgia [None]
  - Muscular weakness [None]

NARRATIVE: CASE EVENT DATE: 20190725
